FAERS Safety Report 6871193-1 (Version None)
Quarter: 2010Q3

REPORT INFORMATION
  Report Type: 
  Country: None (occurrence: None)
  Receive Date: 20100723
  Receipt Date: 20100713
  Transmission Date: 20110219
  Serious: Yes (Hospitalization)
  Sender: FDA-Public Use
  Company Number: CO-ROCHE-714926

PATIENT
  Sex: Male

DRUGS (4)
  1. CELLCEPT [Suspect]
     Dosage: FREQUENCY: EVERYDAY
     Route: 048
     Dates: start: 20090611, end: 20100601
  2. SIROLIMUS [Concomitant]
     Dosage: FREQUENCY: EVERY DAY
     Route: 048
  3. LOSARTAN POSTASSIUM [Concomitant]
     Route: 048
  4. VERAPAMIL [Concomitant]
     Route: 048

REACTIONS (1)
  - TRANSPLANT REJECTION [None]
